FAERS Safety Report 8452912-X (Version None)
Quarter: 2012Q2

REPORT INFORMATION
  Report Type: 
  Country: None (occurrence: None)
  Receive Date: 20120620
  Receipt Date: 20120501
  Transmission Date: 20120825
  Serious: No
  Sender: FDA-Public Use
  Company Number: US-VERTEX PHARMACEUTICALS INC.-AE-2012-006340

PATIENT
  Sex: Male
  Weight: 102.15 kg

DRUGS (8)
  1. RIBAVIRIN [Concomitant]
     Indication: HEPATITIS C
     Route: 048
     Dates: start: 20120331
  2. PEGASYS [Concomitant]
     Indication: HEPATITIS C
     Route: 058
     Dates: start: 20120331
  3. MULTI-VITAMIN [Concomitant]
     Route: 048
  4. SOY LECITHIN [Concomitant]
     Route: 048
     Dates: start: 20120331
  5. SYNTHROID [Concomitant]
     Indication: HYPOTHYROIDISM
     Route: 048
  6. INCIVEK [Suspect]
     Indication: HEPATITIS C
     Route: 048
     Dates: start: 20120331
  7. ADVAIR DISKUS 100/50 [Concomitant]
     Indication: ASTHMA
  8. XANAX [Concomitant]
     Indication: ANXIETY
     Route: 048

REACTIONS (2)
  - WEIGHT DECREASED [None]
  - DRUG INEFFECTIVE [None]
